FAERS Safety Report 8076382-9 (Version None)
Quarter: 2012Q1

REPORT INFORMATION
  Report Type: 
  Country: None (occurrence: None)
  Receive Date: 20120127
  Receipt Date: 20120127
  Transmission Date: 20120608
  Serious: Yes (Life-Threatening, Other)
  Sender: FDA-Public Use
  Company Number: None

PATIENT
  Sex: Female
  Weight: 99.79 kg

DRUGS (1)
  1. AVELOX [Suspect]
     Indication: BRONCHITIS
     Dosage: 1 TABLET
     Route: 048

REACTIONS (13)
  - SWELLING FACE [None]
  - DRUG INTERACTION [None]
  - URTICARIA [None]
  - ERYTHEMA [None]
  - TINNITUS [None]
  - DIZZINESS [None]
  - NO REACTION ON PREVIOUS EXPOSURE TO DRUG [None]
  - OEDEMA PERIPHERAL [None]
  - TREMOR [None]
  - EAR DISCOMFORT [None]
  - ASTHENIA [None]
  - PRURITUS [None]
  - DYSPNOEA [None]
